FAERS Safety Report 8302745-X (Version None)
Quarter: 2012Q2

REPORT INFORMATION
  Report Type: 
  Country: None (occurrence: None)
  Receive Date: 20120420
  Receipt Date: 20120413
  Transmission Date: 20120825
  Serious: Yes (Hospitalization)
  Sender: FDA-Public Use
  Company Number: AU-ELI_LILLY_AND_COMPANY-AU201202004034

PATIENT
  Age: 60 Year
  Sex: Male
  Weight: 95 kg

DRUGS (4)
  1. BYETTA [Suspect]
     Indication: TYPE 2 DIABETES MELLITUS
     Dosage: 5 UG, BID
     Route: 058
     Dates: start: 20110901, end: 20111101
  2. CODALGIN FORTE [Concomitant]
  3. PANTOPRAZOLE [Concomitant]
  4. EFFEXOR [Concomitant]

REACTIONS (8)
  - ABDOMINAL PAIN [None]
  - ADVERSE DRUG REACTION [None]
  - DECREASED APPETITE [None]
  - DIARRHOEA [None]
  - NAUSEA [None]
  - DEHYDRATION [None]
  - VOMITING [None]
  - GLYCOSYLATED HAEMOGLOBIN INCREASED [None]
